FAERS Safety Report 24055379 (Version 1)
Quarter: 2024Q3

REPORT INFORMATION
  Report Type: Spontaneous
  Country: US (occurrence: None)
  Receive Date: 20240703
  Receipt Date: 20240703
  Transmission Date: 20241017
  Serious: Yes (unspecified)
  Sender: Public
  Company Number: None

PATIENT
  Age: 19 Year
  Sex: Female

DRUGS (2)
  1. INSULIN NOS [Suspect]
     Active Substance: INSULIN NOS
  2. DEXTROSE [Suspect]
     Active Substance: DEXTROSE\DEXTROSE MONOHYDRATE

REACTIONS (2)
  - Product administration error [None]
  - Diabetic ketoacidosis [None]

NARRATIVE: CASE EVENT DATE: 20240513
